FAERS Safety Report 10004256 (Version 2)
Quarter: 2014Q2

REPORT INFORMATION
  Report Type: Spontaneous
  Country: US (occurrence: US)
  Receive Date: 20140312
  Receipt Date: 20140618
  Transmission Date: 20141212
  Serious: Yes (Other)
  Sender: FDA-Public Use
  Company Number: US-PFIZER INC-2014068276

PATIENT
  Age: 72 Year
  Sex: Female
  Weight: 49.89 kg

DRUGS (3)
  1. LYRICA [Suspect]
     Indication: NEUROPATHY PERIPHERAL
     Dosage: 100 MG, AS NEEDED (4 OR 5 X DAY)
     Dates: start: 2006
  2. TOVIAZ [Suspect]
     Indication: HYPERTONIC BLADDER
     Dosage: 8 MG, DAILY
  3. HYDROCODONE [Suspect]
     Indication: NEUROPATHY PERIPHERAL
     Dosage: 5 MG, AS NEEDED

REACTIONS (7)
  - Back pain [Not Recovered/Not Resolved]
  - Nerve compression [Not Recovered/Not Resolved]
  - Joint swelling [Not Recovered/Not Resolved]
  - Abasia [Not Recovered/Not Resolved]
  - Fall [Unknown]
  - Ligament sprain [Recovered/Resolved]
  - Foot fracture [Recovered/Resolved]
